FAERS Safety Report 5788388-0 (Version None)
Quarter: 2008Q2

REPORT INFORMATION
  Report Type: 
  Country: None (occurrence: None)
  Receive Date: 20080625
  Receipt Date: 20080613
  Transmission Date: 20081010
  Serious: Yes (Other)
  Sender: FDA-Public Use
  Company Number: US-PFIZER INC-2008051045

PATIENT
  Sex: Female
  Weight: 65.3 kg

DRUGS (5)
  1. LYRICA [Suspect]
     Indication: MIGRAINE
     Route: 048
     Dates: start: 20080201, end: 20080201
  2. SEROQUEL [Concomitant]
  3. CYMBALTA [Concomitant]
  4. KLONOPIN [Concomitant]
  5. PREDNISONE [Concomitant]

REACTIONS (1)
  - DIPLEGIA [None]
